FAERS Safety Report 18542505 (Version 1)
Quarter: 2020Q4

REPORT INFORMATION
  Report Type: Spontaneous
  Country: CN (occurrence: CN)
  Receive Date: 20201124
  Receipt Date: 20201124
  Transmission Date: 20210114
  Serious: Yes (Hospitalization, Other)
  Sender: FDA-Public Use
  Company Number: CN-PFIZER INC-2020464284

PATIENT
  Age: 24 Year
  Sex: Female
  Weight: 52 kg

DRUGS (3)
  1. MEPEM [Suspect]
     Active Substance: MEROPENEM
     Indication: PYREXIA
     Dosage: 1 G, 3X/DAY
     Route: 041
     Dates: start: 20191112, end: 20191114
  2. MEPEM [Suspect]
     Active Substance: MEROPENEM
     Indication: INFECTION
  3. SODIUM CHLORIDE 0.9% [Concomitant]
     Active Substance: SODIUM CHLORIDE
     Indication: INFECTION
     Dosage: 100 ML, 3X/DAY
     Route: 041
     Dates: start: 20191112, end: 20191114

REACTIONS (2)
  - Papule [Recovering/Resolving]
  - Pruritus [Recovering/Resolving]

NARRATIVE: CASE EVENT DATE: 20191114
